FAERS Safety Report 24572001 (Version 1)
Quarter: 2024Q4

REPORT INFORMATION
  Report Type: Spontaneous
  Country: US (occurrence: None)
  Receive Date: 20241031
  Receipt Date: 20241031
  Transmission Date: 20250115
  Serious: Yes (Hospitalization)
  Sender: Public
  Company Number: None

PATIENT
  Age: 61 Year
  Sex: Male
  Weight: 245 kg

DRUGS (1)
  1. EMPAGLIFLOZIN [Suspect]
     Active Substance: EMPAGLIFLOZIN
     Indication: Diabetes mellitus
     Dosage: OTHER FREQUENCY : AM;?
     Route: 048
     Dates: start: 20211201, end: 20240624

REACTIONS (6)
  - Electrolyte imbalance [None]
  - Fatigue [None]
  - Nausea [None]
  - Vomiting [None]
  - Metabolic acidosis [None]
  - Diabetic ketoacidosis [None]

NARRATIVE: CASE EVENT DATE: 20240625
